FAERS Safety Report 16758892 (Version 1)
Quarter: 2019Q3

REPORT INFORMATION
  Report Type: Spontaneous
  Country: CZ (occurrence: CZ)
  Receive Date: 20190830
  Receipt Date: 20190830
  Transmission Date: 20191005
  Serious: Yes (Death)
  Sender: FDA-Public Use
  Company Number: CZ-CELLTRION INC.-2019CZ021787

PATIENT

DRUGS (5)
  1. PREDNISOLONE. [Suspect]
     Active Substance: PREDNISOLONE
     Indication: HODGKIN^S DISEASE
     Dosage: DOSAGE FORM: UNSPECIFIED
     Route: 065
  2. CYCLOPHOSPHAMIDE. [Suspect]
     Active Substance: CYCLOPHOSPHAMIDE
     Indication: HODGKIN^S DISEASE
     Dosage: DOSAGE FORM: UNSPECIFIED
     Route: 065
  3. VINCRISTINE [Suspect]
     Active Substance: VINCRISTINE
     Indication: HODGKIN^S DISEASE
     Dosage: DOSAGE FORM: UNSPECIFIED
     Route: 065
  4. RITUXIMAB (UNKNOWN) [Suspect]
     Active Substance: RITUXIMAB
     Indication: HODGKIN^S DISEASE
     Dosage: DOSAGE FORM: UNSPECIFIED
     Route: 065
  5. DOXORUBICIN HYDROCHLORIDE. [Suspect]
     Active Substance: DOXORUBICIN HYDROCHLORIDE
     Indication: HODGKIN^S DISEASE
     Route: 065

REACTIONS (5)
  - Lymphopenia [Unknown]
  - B-lymphocyte count decreased [Unknown]
  - Off label use [Unknown]
  - Infection [Fatal]
  - Product use in unapproved indication [Unknown]
